FAERS Safety Report 8065909-9 (Version None)
Quarter: 2012Q1

REPORT INFORMATION
  Report Type: 
  Country: None (occurrence: None)
  Receive Date: 20120124
  Receipt Date: 20120112
  Transmission Date: 20120608
  Serious: Yes (Hospitalization, Other)
  Sender: FDA-Public Use
  Company Number: SE-ELI_LILLY_AND_COMPANY-SE201111004600

PATIENT
  Sex: Male

DRUGS (2)
  1. OLANZAPINE [Suspect]
     Dosage: 405 MG, EVERY TEN DAYS
     Route: 030
     Dates: start: 20111109
  2. OLANZAPINE [Suspect]
     Indication: SCHIZOPHRENIA
     Dosage: UNK
     Dates: start: 20110301

REACTIONS (17)
  - TACHYCARDIA [None]
  - NAUSEA [None]
  - ASTHENIA [None]
  - DRUG INEFFECTIVE [None]
  - FEELING ABNORMAL [None]
  - PSYCHOTIC BEHAVIOUR [None]
  - SEDATION [None]
  - GAIT DISTURBANCE [None]
  - ATAXIA [None]
  - UNRESPONSIVE TO STIMULI [None]
  - DIZZINESS [None]
  - FEELING DRUNK [None]
  - CONFUSIONAL STATE [None]
  - DYSARTHRIA [None]
  - ANXIETY [None]
  - OVERDOSE [None]
  - EXTRAPYRAMIDAL DISORDER [None]
